FAERS Safety Report 21390537 (Version 6)
Quarter: 2024Q4

REPORT INFORMATION
  Report Type: Report from Study
  Country: BR (occurrence: BR)
  Receive Date: 20220929
  Receipt Date: 20241210
  Transmission Date: 20250115
  Serious: Yes (Hospitalization, Other)
  Sender: CELLTRION
  Company Number: BR-CELLTRION INC.-2022BR015637

PATIENT

DRUGS (9)
  1. INFLIXIMAB-DYYB [Suspect]
     Active Substance: INFLIXIMAB-DYYB
     Indication: Ankylosing spondylitis
     Dosage: 5 AMPOULES OF 100MG EVERY 8 WEEKS
     Route: 042
     Dates: start: 20220908, end: 20220908
  2. INFLIXIMAB-DYYB [Suspect]
     Active Substance: INFLIXIMAB-DYYB
     Indication: Uveitis
  3. ADALIMUMAB [Suspect]
     Active Substance: ADALIMUMAB
     Indication: Product used for unknown indication
     Dosage: 1 AMPOULE EVERY 14 DAYS
     Dates: start: 20230510
  4. ADALIMUMAB [Suspect]
     Active Substance: ADALIMUMAB
     Dosage: 1 AMPOULE EVERY 14 DAYS
     Dates: start: 202304
  5. LOSARTAN [Concomitant]
     Active Substance: LOSARTAN
     Indication: Hypertension
     Dosage: 2 PILLS PER DAY (START DATE: 2 YEARS AGO)
     Route: 048
  6. LOSARTAN [Concomitant]
     Active Substance: LOSARTAN
     Indication: Hypertension
     Dosage: 2 PILLS PER DAY (START: 2 YEARS AGO)
     Route: 048
  7. METFORMIN [Concomitant]
     Active Substance: METFORMIN HYDROCHLORIDE
     Indication: Diabetes mellitus
     Dosage: 1 PILL A DAY
     Route: 048
  8. METHOTREXATE [Concomitant]
     Active Substance: METHOTREXATE
     Indication: Product used for unknown indication
     Dosage: 6 PILLS A WEEK
     Route: 048
  9. AMLODIPINE BESYLATE [Concomitant]
     Active Substance: AMLODIPINE BESYLATE
     Indication: Hypertension
     Dosage: 1 PILL A DAY (START DATE: UNK)
     Route: 048

REACTIONS (17)
  - Ocular discomfort [Recovered/Resolved]
  - Neck pain [Unknown]
  - Malaise [Unknown]
  - Eye swelling [Not Recovered/Not Resolved]
  - Dizziness [Unknown]
  - Nausea [Unknown]
  - Headache [Unknown]
  - Visual impairment [Recovered/Resolved]
  - Pain [Recovered/Resolved]
  - Hypersensitivity [Recovered/Resolved]
  - Arthralgia [Recovered/Resolved]
  - Inflammation [Unknown]
  - Asthenia [Unknown]
  - Eye inflammation [Unknown]
  - Blood pressure fluctuation [Unknown]
  - Product substitution issue [Unknown]
  - Intentional product use issue [Unknown]

NARRATIVE: CASE EVENT DATE: 20220908
